FAERS Safety Report 5558398-7 (Version None)
Quarter: 2007Q4

REPORT INFORMATION
  Report Type: 
  Country: None (occurrence: None)
  Receive Date: 20071214
  Receipt Date: 20071129
  Transmission Date: 20080405
  Serious: No
  Sender: FDA-Public Use
  Company Number: PR-ABBOTT-07P-131-0426565-00

PATIENT
  Age: 70 Year
  Sex: Female

DRUGS (10)
  1. HUMIRA [Suspect]
     Indication: ARTHRITIS
     Route: 030
  2. AMENDA [Concomitant]
     Indication: DEMENTIA ALZHEIMER'S TYPE
     Route: 048
  3. DONEPEZIL HCL [Concomitant]
     Indication: DEMENTIA ALZHEIMER'S TYPE
     Route: 048
  4. FOLIC ACID [Concomitant]
     Indication: ANAEMIA
     Route: 048
  5. CYANOCOBALAMIN-TANNIN COMPLEX [Concomitant]
     Indication: ANAEMIA
     Route: 048
  6. CYANOCOBALAMIN-TANNIN COMPLEX [Concomitant]
     Route: 030
  7. B6 [Concomitant]
     Indication: ANAEMIA
  8. CALCIUM CARBONATE [Concomitant]
     Indication: OSTEOPOROSIS
     Route: 048
  9. ALENDRONATE SODIUM [Concomitant]
     Indication: OSTEOPOROSIS
  10. CYANOCOBALAMIN-TANNIN COMPLEX [Concomitant]
     Route: 030

REACTIONS (1)
  - EPISTAXIS [None]
